FAERS Safety Report 7588029-6 (Version None)
Quarter: 2011Q3

REPORT INFORMATION
  Report Type: 
  Country: None (occurrence: None)
  Receive Date: 20110705
  Receipt Date: 20110628
  Transmission Date: 20111222
  Serious: No
  Sender: FDA-Public Use
  Company Number: US-PFIZER INC-2011124835

PATIENT
  Age: 69 Year
  Sex: Female

DRUGS (1)
  1. TERRAMYCIN V CAP [Suspect]
     Dosage: UNK

REACTIONS (2)
  - DYSPEPSIA [None]
  - ABDOMINAL DISCOMFORT [None]
